FAERS Safety Report 18910798 (Version 1)
Quarter: 2021Q1

REPORT INFORMATION
  Report Type: Spontaneous
  Country: UY (occurrence: UY)
  Receive Date: 20210218
  Receipt Date: 20210218
  Transmission Date: 20210420
  Serious: Yes (Hospitalization)
  Sender: FDA-Public Use
  Company Number: UY-PFIZER INC-2021128167

PATIENT
  Age: 10 Year
  Sex: Female

DRUGS (1)
  1. GENOTROPIN [Suspect]
     Active Substance: SOMATROPIN
     Indication: PRADER-WILLI SYNDROME
     Dosage: 0.6 TO 1 MG, 7 TIMES PER WEEK
     Dates: start: 20181128

REACTIONS (2)
  - Respiratory disorder [Unknown]
  - Bronchospasm [Unknown]

NARRATIVE: CASE EVENT DATE: 201901
